FAERS Safety Report 10068264 (Version 1)
Quarter: 2014Q2

REPORT INFORMATION
  Report Type: Spontaneous
  Country: US (occurrence: US)
  Receive Date: 20140409
  Receipt Date: 20140409
  Transmission Date: 20141212
  Serious: No
  Sender: FDA-Public Use
  Company Number: US-PFIZER INC-2014098205

PATIENT
  Age: 61 Year
  Sex: Female
  Weight: 46.7 kg

DRUGS (4)
  1. RELPAX [Suspect]
     Indication: HEADACHE
     Dosage: 40 MG, AS NEEDED
  2. BUPAP [Suspect]
     Indication: HEADACHE
     Dosage: UNKNOWN
  3. ZIPSOR [Suspect]
     Indication: HEADACHE
     Dosage: UNKNOWN
  4. SYNTHROID [Concomitant]
     Indication: HYPOTHYROIDISM
     Dosage: UNK

REACTIONS (1)
  - Drug ineffective [Unknown]
